FAERS Safety Report 5502836-2 (Version None)
Quarter: 2007Q4

REPORT INFORMATION
  Report Type: 
  Country: None (occurrence: None)
  Receive Date: 20071029
  Receipt Date: 20070926
  Transmission Date: 20080405
  Serious: Yes (Other)
  Sender: FDA-Public Use
  Company Number: CHPA2007US09880

PATIENT
  Sex: Male

DRUGS (2)
  1. GAS-X EXTRA STR CHEWABLE TABLETS UNKNOWN (NCH)(SIMETHICONE) CHEWABLE T [Suspect]
  2. GAS-X (NCH)(SIMETHICONE) DISPERSIBLE TABLET [Suspect]

REACTIONS (2)
  - CHEST DISCOMFORT [None]
  - DYSPNOEA [None]
